FAERS Safety Report 17640516 (Version 5)
Quarter: 2020Q2

REPORT INFORMATION
  Report Type: Spontaneous
  Country: US (occurrence: US)
  Receive Date: 20200408
  Receipt Date: 20200514
  Transmission Date: 20200713
  Serious: No
  Sender: FDA-Public Use
  Company Number: US-BRISTOL-MYERS SQUIBB COMPANY-BMS-2020-029398

PATIENT
  Age: 68 Year
  Sex: Female
  Weight: 78.93 kg

DRUGS (3)
  1. VITAMINS NOS [Concomitant]
     Active Substance: VITAMINS
     Indication: PRODUCT USED FOR UNKNOWN INDICATION
     Dosage: UNK
     Route: 065
  2. ELIQUIS [Suspect]
     Active Substance: APIXABAN
     Indication: DEEP VEIN THROMBOSIS
     Dosage: 5 MILLIGRAM, BID
     Route: 048
     Dates: start: 202003
  3. OXYCODONE [Concomitant]
     Active Substance: OXYCODONE
     Indication: PRODUCT USED FOR UNKNOWN INDICATION
     Route: 065

REACTIONS (10)
  - Headache [Unknown]
  - Body temperature increased [Unknown]
  - Pyrexia [Unknown]
  - Movement disorder [Unknown]
  - Feeling abnormal [Unknown]
  - Pain [Unknown]
  - Inflammation [Unknown]
  - Gait disturbance [Unknown]
  - Pruritus [Unknown]
  - Neck pain [Unknown]

NARRATIVE: CASE EVENT DATE: 202003
